FAERS Safety Report 6329252-8 (Version None)
Quarter: 2009Q3

REPORT INFORMATION
  Report Type: 
  Country: None (occurrence: None)
  Receive Date: 20090826
  Receipt Date: 20090817
  Transmission Date: 20100115
  Serious: Yes (Death, Hospitalization, Other)
  Sender: FDA-Public Use
  Company Number: JP-SOLVAY-00309000403

PATIENT
  Age: 22404 Day
  Sex: Female
  Weight: 38 kg

DRUGS (23)
  1. TAURINE [Concomitant]
     Indication: HEPATIC INFARCTION
     Dosage: DAILY DOSE: 3.06 GRAM(S)
     Route: 048
     Dates: start: 20080822, end: 20090204
  2. CREON [Suspect]
     Indication: PANCREATIC INSUFFICIENCY
     Dosage: DAILY DOSE:  4-16 CAP, AS USED: 2-4CAP, FREQUENCY:1-5 TIMES A DAY
     Route: 048
     Dates: start: 20080822, end: 20090109
  3. ALLOID G [Concomitant]
     Indication: GASTRIC ULCER HAEMORRHAGE
     Dosage: DAILY DOSE: 60 MILLILITRE(S)
     Route: 048
     Dates: start: 20080822, end: 20090204
  4. MAGNESIUM OXIDE [Suspect]
     Indication: CONSTIPATION
     Dosage: DAILY DOSE:  2-6 GRAM(S), AS USED: 2 GRAM(S), FREQUENCY: 1-3 TIMES PER DAY
     Route: 048
     Dates: start: 20080822, end: 20090206
  5. URSO 250 [Concomitant]
     Indication: CHOLANGITIS
     Dosage: DAILY DOSE: 600 MILLIGRAM(S)
     Route: 048
     Dates: start: 20080822, end: 20090204
  6. LASIX [Concomitant]
     Indication: ASCITES
     Dosage: DAILY DOSE: 20 MILLIGRAM(S)
     Route: 048
     Dates: start: 20080822, end: 20090408
  7. ALDACTONE [Concomitant]
     Indication: ASCITES
     Dosage: DAILY DOSE: 25 MILLIGRAM(S)
     Route: 048
     Dates: start: 20080822, end: 20090408
  8. PARIET [Concomitant]
     Indication: GASTRIC ULCER HAEMORRHAGE
     Dosage: DAILY DOSE: 10 MILLIGRAM(S)
     Route: 048
     Dates: start: 20080822, end: 20090408
  9. MIYA BM [Concomitant]
     Indication: CONSTIPATION
     Dosage: DAILY DOSE: 3 GRAM(S)
     Route: 048
     Dates: start: 20080822, end: 20090204
  10. OXYCONTIN [Concomitant]
     Indication: CANCER PAIN
     Dosage: DAILY DOSE: 10 MILLIGRAM(S)
     Route: 048
     Dates: start: 20080822, end: 20080918
  11. OXYCONTIN [Concomitant]
     Dosage: DAILY DOSE: 20 MILLIGRAM(S)
     Route: 048
     Dates: start: 20080919, end: 20090120
  12. NOVORAPID [Concomitant]
     Indication: DIABETES MELLITUS
     Dosage: DAILY DOSE:  8-6 INTERNATIONAL UNIT (IU), AS USED 4-8 IU, FREQUENCY: 1-3 TIMES PER DAY
     Route: 058
     Dates: start: 20080822, end: 20090112
  13. LEVEMIR [Concomitant]
     Indication: DIABETES MELLITUS
     Dosage: DAILY DOSE:  10-22 IU, AS USED: 4-12 IU, FREQUENCY: TWICE A DAY
     Route: 058
     Dates: start: 20080822, end: 20090112
  14. VOLTAREN [Concomitant]
     Indication: CHOLANGITIS
     Dosage: DAILY DOSE:  UNKNOWN; AS USED: 25MG; FREQUENCY: AS NEEDED; ROUTE: PER RECTUM(PR)
     Route: 054
     Dates: start: 20081017, end: 20081017
  15. LEVOFLOXACIN [Concomitant]
     Indication: PYREXIA
     Dosage: DAILY DOSE: 300 MILLIGRAM(S)
     Route: 048
     Dates: start: 20080822, end: 20080826
  16. LEVOFLOXACIN [Concomitant]
     Dosage: DAILY DOSE: 300 MILLIGRAM(S)
     Route: 048
     Dates: start: 20081017, end: 20081017
  17. OXINORM [Concomitant]
     Indication: CANCER PAIN
     Dosage: DAILY DOSE:  UNKNOWN; AS USED: 2.5MG, FREQUENCY: AS NEEDED.
     Route: 048
     Dates: start: 20081212, end: 20090309
  18. PURSENNID [Concomitant]
     Indication: CONSTIPATION
     Dosage: DAILY DOSE: 24 MILLIGRAM(S)
     Route: 048
     Dates: start: 20090105, end: 20090107
  19. VISINE EYE DROPS [Concomitant]
     Indication: CONJUNCTIVITIS
     Dosage: DAILY DOSE: ADEQUATE DOSE; AS USED:ADEQUATE DOSE; FREQUENCY: AS NEEDED; ROUTE: OP
     Route: 050
     Dates: start: 20080919, end: 20080919
  20. VISINE EYE DROPS [Concomitant]
     Dosage: DAILY DOSE: ADEQUATE DOSE; AS USED:ADEQUATE DOSE; FREQUENCY: AS NEEDED; ROUTE: OP
     Route: 050
     Dates: start: 20080920, end: 20081017
  21. SMAILE 40 [Concomitant]
     Indication: DRY EYE
     Dosage: DAILY DOSE: ADEQUATE DOSE, AS USED:ADEQUATE DOSE, FREQUENCY: AS NEEDED; ROUTE: OP, UNIT DOSE 40
     Route: 050
     Dates: start: 20081201, end: 20090425
  22. PROSCOPE 300 [Concomitant]
     Indication: SCAN WITH CONTRAST
     Dosage: DAILY DOSE: ADEQUATE DOSE,  AS USED:ADEQUATE DOSE, FREQUENCY: AT EXAMINATION
     Route: 042
     Dates: start: 20081031, end: 20081031
  23. ISOTONIC SODIUM CHLORIDE SOLUTION [Concomitant]
     Indication: PROPHYLAXIS
     Dosage: DAILY DOSE: ADEQUATE DOSE,  AS USED:ADEQUATE DOSE, FREQUENCY: AT EXAMINATION
     Route: 042
     Dates: start: 20081031, end: 20081031

REACTIONS (4)
  - ANAEMIA [None]
  - HYPOPHOSPHATAEMIA [None]
  - METASTASES TO LYMPH NODES [None]
  - PROTEINURIA [None]
